FAERS Safety Report 8524928 (Version 7)
Quarter: 2012Q4

REPORT INFORMATION
  Report Type: 
  Country: US (occurrence: US)
  Receive Date: 20120423
  Receipt Date: 20121026
  Transmission Date: 20130627
  Serious: No
  Sender: FDA-Public Use
  Company Number: US-PFIZER INC-2012093899

PATIENT
  Age: 69 Year
  Sex: Male
  Weight: 104 kg

DRUGS (26)
  1. SUTENT [Suspect]
     Indication: METASTATIC RENAL CELL CARCINOMA
     Dosage: 50 mg,daily (for 28 days followed by rest of 14 days)
     Route: 048
     Dates: start: 20120412, end: 20120510
  2. SUTENT [Suspect]
     Indication: RENAL CELL CARCINOMA
     Dosage: 50 mg, cyclic
     Dates: start: 20120524, end: 20120531
  3. SUTENT [Suspect]
     Dosage: 50 mg, cyclic
     Route: 048
     Dates: start: 20120716
  4. SUTENT [Suspect]
     Dosage: 50 mg, cyclic (42 day cycle)
     Dates: start: 20120827, end: 20120924
  5. NORCO [Suspect]
     Indication: BACK PAIN
     Dosage: as needed
     Dates: start: 20120413
  6. TYLENOL [Suspect]
     Dosage: as needed
  7. CLONIDINE [Concomitant]
     Indication: BLOOD PRESSURE SYSTOLIC ABNORMAL
     Dosage: every 4 hours as needed
     Dates: start: 1973
  8. CARVEDILOL [Concomitant]
     Indication: HYPERTENSION
     Dosage: 25 mg, 2x/day
     Dates: start: 1973
  9. HYDROCHLOROTHIAZIDE [Concomitant]
     Indication: HYPERTENSION
     Dosage: 25 mg, 1x/day
     Dates: start: 1973
  10. LOTREL [Concomitant]
     Indication: HYPERTENSION
     Dosage: 10/20 mg, 1x/day
     Dates: start: 1973
  11. ALPRAZOLAM [Concomitant]
     Indication: ANXIETY
     Dosage: 0.5 mg, 1x/day
  12. METFORMIN [Concomitant]
     Indication: TYPE 2 DIABETES MELLITUS
     Dosage: 500 mg, 2x/day
  13. LIPITOR [Concomitant]
     Dosage: 40 mg (frequency unspecified)
  14. PROTONIX [Concomitant]
     Indication: DYSPEPSIA
     Dosage: 40 mg, 1x/day
  15. PROTONIX [Concomitant]
     Indication: GASTROOESOPHAGEAL REFLUX DISEASE
  16. ZOMETA [Concomitant]
     Indication: BLOOD CALCIUM DECREASED
     Dosage: 4 mg, monthly
     Route: 042
  17. FLONASE [Concomitant]
     Indication: HYPERSENSITIVITY
     Dosage: as needed
  18. ALAWAY [Concomitant]
     Indication: SEASONAL ALLERGY
     Dosage: as needed
  19. MORPHINE SULFATE [Concomitant]
     Indication: MUSCULOSKELETAL PAIN
     Dosage: 2x/day (every 12 hours)
     Dates: start: 2012
  20. FISH OIL [Concomitant]
     Dosage: UNK
  21. VITAMIN C [Concomitant]
     Dosage: UNK
  22. VITAMIN D [Concomitant]
     Dosage: UNK
  23. VITAMIN E [Concomitant]
     Dosage: UNK
  24. ASPIRIN [Concomitant]
     Dosage: 81 mg, UNK
  25. ATORVASTATIN [Concomitant]
     Dosage: UNK
  26. FLUTICASONE PROPIONATE [Concomitant]
     Dosage: as needed

REACTIONS (11)
  - Hypertension [Unknown]
  - Blood bilirubin increased [Recovered/Resolved]
  - Blood creatinine increased [Unknown]
  - Constipation [Recovered/Resolved]
  - Somnolence [Unknown]
  - Pain in extremity [Recovering/Resolving]
  - Dyspepsia [Unknown]
  - Vertigo [Unknown]
  - Fatigue [Unknown]
  - Back pain [Unknown]
  - Musculoskeletal pain [Unknown]
